FAERS Safety Report 6849822-8 (Version None)
Quarter: 2010Q3

REPORT INFORMATION
  Report Type: 
  Country: None (occurrence: None)
  Receive Date: 20100716
  Receipt Date: 20080305
  Transmission Date: 20110219
  Serious: No
  Sender: FDA-Public Use
  Company Number: US-PFIZER INC-2007083641

PATIENT
  Sex: Female
  Weight: 76.2 kg

DRUGS (8)
  1. CHANTIX [Suspect]
     Indication: SMOKING CESSATION THERAPY
     Route: 048
     Dates: start: 20070827
  2. ALL OTHER THERAPEUTIC PRODUCTS [Interacting]
  3. VYTORIN [Concomitant]
  4. VENLAFAXINE HYDROCHLORIDE [Concomitant]
  5. LISINOPRIL [Concomitant]
  6. COREG [Concomitant]
  7. ALPRAZOLAM [Concomitant]
  8. AMBIEN [Concomitant]

REACTIONS (2)
  - AGITATION [None]
  - DRUG INTERACTION [None]
